FAERS Safety Report 7131219-7 (Version None)
Quarter: 2010Q4

REPORT INFORMATION
  Report Type: 
  Country: None (occurrence: None)
  Receive Date: 20101201
  Receipt Date: 20101126
  Transmission Date: 20110411
  Serious: Yes (Hospitalization)
  Sender: FDA-Public Use
  Company Number: CH-MERCK-1011USA03501

PATIENT
  Age: 57 Year
  Sex: Female

DRUGS (1)
  1. NOROXIN [Suspect]
     Indication: URINARY TRACT INFECTION
     Route: 048
     Dates: end: 20101008

REACTIONS (4)
  - ANGIOEDEMA [None]
  - DYSPNOEA [None]
  - SKIN REACTION [None]
  - TYPE I HYPERSENSITIVITY [None]
